FAERS Safety Report 10403694 (Version 1)
Quarter: 2014Q3

REPORT INFORMATION
  Report Type: Spontaneous
  Country: US (occurrence: US)
  Receive Date: 20140822
  Receipt Date: 20140822
  Transmission Date: 20150326
  Serious: No
  Sender: FDA-Public Use
  Company Number: US-ASTRAZENECA-2014SE08395

PATIENT
  Age: 39 Year
  Sex: Female
  Weight: 53.1 kg

DRUGS (3)
  1. SYMBICORT [Suspect]
     Active Substance: BUDESONIDE\FORMOTEROL FUMARATE DIHYDRATE
     Indication: ASTHMA
     Dosage: DOSE: 160 MCG/4.5 MCG, 1 PUFF, DAILY
     Route: 055
  2. SYMBICORT [Suspect]
     Active Substance: BUDESONIDE\FORMOTEROL FUMARATE DIHYDRATE
     Indication: ASTHMA
     Dosage: DOSE: 160 MCG/4.5 MCG, 2 PUFFS,TWO TIMES A DAY
     Route: 055
     Dates: start: 2009
  3. SYMBICORT [Suspect]
     Active Substance: BUDESONIDE\FORMOTEROL FUMARATE DIHYDRATE
     Indication: ASTHMA
     Dosage: DOSE: 160 MCG/4.5 MCG, 1 PUFF, TWO TIMES A DAY
     Route: 055

REACTIONS (2)
  - Muscle spasms [Recovering/Resolving]
  - Intentional product misuse [Unknown]
